FAERS Safety Report 10209770 (Version 1)
Quarter: 2014Q2

REPORT INFORMATION
  Report Type: Spontaneous
  Country: US (occurrence: US)
  Receive Date: 20140602
  Receipt Date: 20140602
  Transmission Date: 20141212
  Serious: No
  Sender: FDA-Public Use
  Company Number: US-009507513-1406USA000225

PATIENT
  Age: 36 Year
  Sex: Female
  Weight: 54.42 kg

DRUGS (1)
  1. NUVARING [Suspect]
     Indication: CONTRACEPTION
     Dosage: UNK
     Route: 067
     Dates: start: 2012

REACTIONS (4)
  - Vaginal discharge [Unknown]
  - Vaginal haemorrhage [Unknown]
  - Breast tenderness [Unknown]
  - Inappropriate schedule of drug administration [Unknown]
